FAERS Safety Report 8211886-7 (Version None)
Quarter: 2012Q1

REPORT INFORMATION
  Report Type: 
  Country: None (occurrence: None)
  Receive Date: 20120315
  Receipt Date: 20120305
  Transmission Date: 20120608
  Serious: Yes (Hospitalization, Other)
  Sender: FDA-Public Use
  Company Number: US-BAXTER-2012BH006321

PATIENT
  Sex: Female

DRUGS (10)
  1. METOCLOPRAMIDE [Concomitant]
     Indication: NAUSEA
     Route: 048
  2. DIANEAL [Suspect]
     Indication: PERITONEAL DIALYSIS
     Route: 033
     Dates: start: 20050606
  3. METOPROLOL SUCCINATE [Concomitant]
     Indication: HYPERTENSION
     Route: 048
  4. LANTUS [Concomitant]
     Indication: DIABETES MELLITUS
     Route: 065
  5. LEVOTHYROXINE SODIUM [Concomitant]
     Indication: THYROID DISORDER
     Route: 065
  6. DIANEAL [Suspect]
     Indication: PERITONEAL DIALYSIS
     Route: 033
     Dates: start: 20050606
  7. SEROQUEL [Suspect]
     Indication: AMNESIA
     Route: 048
     Dates: start: 20120201
  8. LOSARTAN POTASSIUM [Concomitant]
     Indication: HYPERTENSION
     Route: 048
  9. HUMALOG [Concomitant]
     Indication: DIABETES MELLITUS
     Route: 058
  10. SENSIPAR [Concomitant]
     Indication: PRODUCT USED FOR UNKNOWN INDICATION
     Route: 048

REACTIONS (3)
  - HEAD INJURY [None]
  - ALTERED STATE OF CONSCIOUSNESS [None]
  - SUBDURAL HAEMATOMA [None]
